FAERS Safety Report 8472114-0 (Version None)
Quarter: 2012Q2

REPORT INFORMATION
  Report Type: 
  Country: None (occurrence: None)
  Receive Date: 20120627
  Receipt Date: 20120612
  Transmission Date: 20120825
  Serious: Yes (Other)
  Sender: FDA-Public Use
  Company Number: DE-CELGENEUS-062-DEXAM-12062871

PATIENT
  Age: 70 Year
  Sex: Male

DRUGS (7)
  1. CELECOXIB [Suspect]
     Indication: PROSTATE CANCER METASTATIC
     Dosage: 400 MILLIGRAM
     Route: 065
  2. DEXAMETHASONE [Suspect]
     Indication: PROSTATE CANCER METASTATIC
     Route: 065
     Dates: start: 20090401
  3. DEXAMETHASONE [Suspect]
     Route: 065
     Dates: start: 20090701
  4. REVLIMID [Suspect]
     Indication: PROSTATE CANCER METASTATIC
     Dosage: 25 MILLIGRAM
     Route: 048
     Dates: start: 20100601
  5. REVLIMID [Suspect]
     Dosage: 15 MILLIGRAM
     Route: 048
  6. DEXAMETHASONE [Suspect]
     Route: 065
     Dates: start: 20100301
  7. DEXAMETHASONE [Suspect]
     Route: 065

REACTIONS (8)
  - LEUKOPENIA [None]
  - DYSGEUSIA [None]
  - ANAEMIA [None]
  - NEUROPATHY PERIPHERAL [None]
  - CUSHING'S SYNDROME [None]
  - FURUNCLE [None]
  - OSTEOARTHRITIS [None]
  - THROMBOCYTOPENIA [None]
